FAERS Safety Report 15710410 (Version 1)
Quarter: 2018Q4

REPORT INFORMATION
  Report Type: Spontaneous
  Country: US (occurrence: US)
  Receive Date: 20181211
  Receipt Date: 20181211
  Transmission Date: 20190205
  Serious: Yes (Other)
  Sender: FDA-Public Use
  Company Number: US-LPDUSPRD-20171779

PATIENT
  Age: 72 Year
  Sex: Female
  Weight: 99 kg

DRUGS (24)
  1. IPRATROPIUM [Concomitant]
     Active Substance: IPRATROPIUM
     Dosage: 2 PUFFS( 2 IN 1 D)
     Route: 048
     Dates: start: 20141108
  2. GABAPENTIN. [Concomitant]
     Active Substance: GABAPENTIN
     Dosage: 300 MG DAILY
     Route: 048
     Dates: start: 20170516
  3. ZEMPLAR [Concomitant]
     Active Substance: PARICALCITOL
     Dosage: 3 MCG, QTX
     Route: 042
     Dates: start: 20171106
  4. BUDESONIDE. [Concomitant]
     Active Substance: BUDESONIDE
     Dosage: 2 DOSAGE FORMS DAILY
     Route: 050
     Dates: start: 20160428
  5. VENOFER [Suspect]
     Active Substance: IRON SUCROSE
     Dosage: 100 MG
     Route: 040
     Dates: start: 20171212
  6. PARACETAMOL HYDROCODONE BITARTRATE [Concomitant]
     Dosage: 10-325 3 IN 1 DAY
     Route: 048
     Dates: start: 20141108
  7. PROAIR HFA [Concomitant]
     Active Substance: ALBUTEROL SULFATE
     Dosage: 2 PUFFS
     Route: 065
     Dates: start: 20170516
  8. OXYGEN. [Concomitant]
     Active Substance: OXYGEN
     Dosage: 2 L/MIN
     Route: 045
     Dates: start: 20160428
  9. ADVAIR DISKUS [Concomitant]
     Active Substance: FLUTICASONE PROPIONATE\SALMETEROL XINAFOATE
     Dosage: ONE PUFF (2 IN 1 D)
     Route: 048
     Dates: start: 20170516
  10. CLORAZEPATE DIPOTASSIUM. [Concomitant]
     Active Substance: CLORAZEPATE DIPOTASSIUM
     Dosage: 15 MG (7.5 MG 2 IN 1 D)
     Route: 048
     Dates: start: 20151111
  11. KAYEXALATE [Concomitant]
     Active Substance: SODIUM POLYSTYRENE SULFONATE
     Dosage: 15 GM
     Route: 048
     Dates: start: 20170914
  12. METOLAZONE. [Concomitant]
     Active Substance: METOLAZONE
     Dosage: 2.5  MG
     Route: 048
     Dates: start: 20170516
  13. MIRCERA [Suspect]
     Active Substance: METHOXY POLYETHYLENE GLYCOL-EPOETIN BETA
     Dosage: 150 MCG EVERY 2 WEEKS
     Route: 040
     Dates: start: 201711
  14. AMRIX [Concomitant]
     Active Substance: CYCLOBENZAPRINE HYDROCHLORIDE
     Dosage: 10 MG
     Route: 048
     Dates: start: 20151112
  15. RENVELA [Concomitant]
     Active Substance: SEVELAMER CARBONATE
     Dosage: 2400 MG
     Route: 048
     Dates: start: 20160824
  16. ALPRAZOLAM. [Concomitant]
     Active Substance: ALPRAZOLAM
     Dosage: 0.5 MG (0.25 MG ,2 IN 1 D)
     Route: 048
     Dates: start: 20151111
  17. BROVANA [Concomitant]
     Active Substance: ARFORMOTEROL TARTRATE
     Dosage: 1 DOSAGE FORM ( 2 IN 1 DAY)
     Route: 050
     Dates: start: 20160428
  18. ATORVASTATIN CALCIUM. [Concomitant]
     Active Substance: ATORVASTATIN CALCIUM
     Dosage: 20 MG DAILY
     Route: 048
     Dates: start: 20171222
  19. MEDROL [Concomitant]
     Active Substance: METHYLPREDNISOLONE
     Dosage: 8 MG
     Route: 048
     Dates: start: 20170516
  20. NEPHRO VITE RX [Concomitant]
     Active Substance: ASCORBIC ACID\BIOTIN\CALCIUM PANTOTHENATE\CYANOCOBALAMIN\FOLIC ACID\NIACINAMIDE\PYRIDOXINE HYDROCHLORIDE\RIBOFLAVIN\THIAMINE MONONITRATE
     Dosage: 1 DOSAGE FORM Q PM
     Route: 048
     Dates: start: 20170427
  21. PROTONIX [Concomitant]
     Active Substance: PANTOPRAZOLE SODIUM
     Dosage: 80 MG
     Route: 048
     Dates: start: 20171222
  22. COLECALCIFEROL [Concomitant]
     Active Substance: CHOLECALCIFEROL
     Dosage: 2000 IU DAILY
     Route: 048
     Dates: start: 20170516
  23. BENADRYL [Concomitant]
     Active Substance: DIPHENHYDRAMINE HYDROCHLORIDE
     Dosage: 25 MG  AS NEEDED
     Route: 065
     Dates: start: 20151111
  24. FUROSEMIDE. [Concomitant]
     Active Substance: FUROSEMIDE
     Dosage: 120 MG
     Route: 048
     Dates: start: 20151111

REACTIONS (1)
  - Drug hypersensitivity [Unknown]

NARRATIVE: CASE EVENT DATE: 201711
